FAERS Safety Report 12054369 (Version 1)
Quarter: 2016Q1

REPORT INFORMATION
  Report Type: Spontaneous
  Country: HR (occurrence: HR)
  Receive Date: 20160209
  Receipt Date: 20160209
  Transmission Date: 20160526
  Serious: Yes (Death, Hospitalization)
  Sender: FDA-Public Use
  Company Number: HR-SA-2016SA022249

PATIENT
  Sex: Female

DRUGS (5)
  1. PERJETA [Suspect]
     Active Substance: PERTUZUMAB
     Dosage: LOADING DOSE.
     Route: 065
     Dates: start: 20151202
  2. PERJETA [Suspect]
     Active Substance: PERTUZUMAB
     Dosage: MAINTANANCE DOSE.
     Route: 065
     Dates: start: 20151202
  3. HERCEPTIN [Suspect]
     Active Substance: TRASTUZUMAB
     Dosage: MAINTANANCE DOSE.
     Route: 065
  4. DOCETAXEL. [Suspect]
     Active Substance: DOCETAXEL
     Route: 065
     Dates: start: 20151202
  5. HERCEPTIN [Suspect]
     Active Substance: TRASTUZUMAB
     Dosage: LOADING DOSE.
     Route: 065
     Dates: start: 20151202

REACTIONS (2)
  - Embolism [Fatal]
  - Pathological fracture [Unknown]
